FAERS Safety Report 6174926-5 (Version None)
Quarter: 2009Q2

REPORT INFORMATION
  Report Type: 
  Country: None (occurrence: None)
  Receive Date: 20090430
  Receipt Date: 20081009
  Transmission Date: 20091009
  Serious: No
  Sender: FDA-Public Use
  Company Number: US-ASTRAZENECA-2008UW22388

PATIENT
  Sex: Female

DRUGS (5)
  1. NEXIUM [Suspect]
     Indication: GASTROOESOPHAGEAL REFLUX DISEASE
     Route: 048
     Dates: start: 20070401, end: 20070501
  2. NEXIUM [Suspect]
     Route: 048
     Dates: start: 20081008
  3. CORTISONE [Concomitant]
  4. ESTRACE [Concomitant]
  5. FISH OIL [Concomitant]

REACTIONS (4)
  - ARTHROPATHY [None]
  - HEADACHE [None]
  - TENDONITIS [None]
  - URINARY TRACT INFECTION [None]
